FAERS Safety Report 7592621-2 (Version None)
Quarter: 2011Q3

REPORT INFORMATION
  Report Type: 
  Country: None (occurrence: None)
  Receive Date: 20110706
  Receipt Date: 20110630
  Transmission Date: 20111222
  Serious: Yes (Hospitalization)
  Sender: FDA-Public Use
  Company Number: JP-B.I. PHARMACEUTICALS,INC./RIDGEFIELD-2011-BP-15052NB

PATIENT
  Sex: Male

DRUGS (8)
  1. BIO-THREE [Concomitant]
     Route: 065
  2. MAGNESIUM OXIDE [Concomitant]
     Dosage: 3 G
     Route: 065
  3. PRADAXA [Suspect]
     Indication: ANTICOAGULANT THERAPY
     Dosage: 150 MG
     Route: 048
     Dates: start: 20110425, end: 20110502
  4. ASPIRIN [Concomitant]
     Dosage: 100 MG
     Route: 065
  5. HALTHROW [Concomitant]
     Dosage: 0.2 MG
     Route: 065
  6. FANMIL [Concomitant]
     Dosage: 300 MG
     Route: 065
  7. MEVAN [Concomitant]
     Route: 065
  8. FAMOTIDINE [Concomitant]
     Route: 065

REACTIONS (3)
  - HYPOPHAGIA [None]
  - MYOCLONUS [None]
  - LIVER FUNCTION TEST ABNORMAL [None]
